FAERS Safety Report 22215921 (Version 2)
Quarter: 2023Q2

REPORT INFORMATION
  Report Type: Spontaneous
  Country: US (occurrence: US)
  Receive Date: 20230417
  Receipt Date: 20230505
  Transmission Date: 20230722
  Serious: No
  Sender: FDA-Public Use
  Company Number: US-SA-SAC20230413000706

PATIENT
  Age: 17 Year
  Sex: Male
  Weight: 50.7 kg

DRUGS (6)
  1. DUPIXENT [Suspect]
     Active Substance: DUPILUMAB
     Indication: Dermatitis atopic
     Dosage: 300 MG, QOW
     Route: 058
     Dates: start: 20220903
  2. VITAMINS NOS [Concomitant]
     Active Substance: VITAMINS
  3. VITAMIN D3 [Concomitant]
     Active Substance: CHOLECALCIFEROL
  4. MOMETASONE FUROATE [Concomitant]
     Active Substance: MOMETASONE FUROATE
  5. TACROLIMUS [Concomitant]
     Active Substance: TACROLIMUS
  6. EPINEPHRINE [Concomitant]
     Active Substance: EPINEPHRINE

REACTIONS (3)
  - Dermatitis atopic [Unknown]
  - Therapeutic response decreased [Unknown]
  - Incorrect dose administered [Unknown]

NARRATIVE: CASE EVENT DATE: 20220903
